FAERS Safety Report 8909284 (Version 2)
Quarter: 2013Q1

REPORT INFORMATION
  Report Type: Spontaneous
  Country: CA (occurrence: None)
  Receive Date: 20121107
  Receipt Date: 20130129
  Transmission Date: 20140127
  Serious: Yes (Other)
  Sender: FDA-Public Use
  Company Number: CA-009970

PATIENT
  Age: 12 Year
  Sex: 0
  Weight: 102.06 kg

DRUGS (3)
  1. DESMOPRESSIN ACETATE [Suspect]
     Indication: PRODUCT USED FOR UNKNOWN INDICATION
  2. HYDROCORTISONE [Concomitant]
  3. THYROXINE [Concomitant]

REACTIONS (3)
  - Abdominal pain [None]
  - Dyspnoea [None]
  - Rash [None]
